FAERS Safety Report 12528428 (Version 3)
Quarter: 2016Q3

REPORT INFORMATION
  Report Type: Spontaneous
  Country: US (occurrence: US)
  Receive Date: 20160705
  Receipt Date: 20160829
  Transmission Date: 20161109
  Serious: Yes (Hospitalization)
  Sender: FDA-Public Use
  Company Number: US-JNJFOC-20160625552

PATIENT
  Sex: Female
  Weight: 58.06 kg

DRUGS (7)
  1. ALPHA LIPOIC ACID [Concomitant]
     Active Substance: .ALPHA.-LIPOIC ACID
     Indication: PRODUCT USED FOR UNKNOWN INDICATION
     Route: 065
  2. PRISTIQ EXTENDED-RELEASE [Concomitant]
     Active Substance: DESVENLAFAXINE SUCCINATE
     Indication: FIBROMYALGIA
     Dosage: STARTED YEARS AGO AND ALMOST OUT
     Route: 065
  3. TOPAMAX [Suspect]
     Active Substance: TOPIRAMATE
     Indication: FIBROMYALGIA
     Dosage: 600 MG IN MORNING AND 600 MG IN EVENING, STARTED YEARS AGO AND ALMOST OUT
     Route: 048
  4. MAGNESIUM [Concomitant]
     Active Substance: MAGNESIUM
     Indication: PRODUCT USED FOR UNKNOWN INDICATION
     Route: 065
  5. TOPAMAX [Suspect]
     Active Substance: TOPIRAMATE
     Indication: MIGRAINE PROPHYLAXIS
     Dosage: 600 MG IN MORNING AND 600 MG IN EVENING, STARTED YEARS AGO AND ALMOST OUT
     Route: 048
  6. PRISTIQ EXTENDED-RELEASE [Concomitant]
     Active Substance: DESVENLAFAXINE SUCCINATE
     Indication: MIGRAINE
     Dosage: STARTED YEARS AGO AND ALMOST OUT
     Route: 065
  7. NAPROXEN. [Concomitant]
     Active Substance: NAPROXEN
     Indication: MIGRAINE
     Dosage: COMPLETELY OUT
     Route: 065

REACTIONS (4)
  - Off label use [Unknown]
  - Malaise [Unknown]
  - Incorrect dose administered [Unknown]
  - Feeling abnormal [Recovering/Resolving]
